FAERS Safety Report 11527181 (Version 1)
Quarter: 2015Q3

REPORT INFORMATION
  Report Type: Spontaneous
  Country: US (occurrence: US)
  Receive Date: 20150903
  Receipt Date: 20150903
  Transmission Date: 20151125
  Serious: No
  Sender: FDA-Public Use
  Company Number: US-ELI_LILLY_AND_COMPANY-US200906000175

PATIENT
  Age: 68 Year
  Sex: Male
  Weight: 82.99 kg

DRUGS (6)
  1. CILOSTAZOL. [Concomitant]
     Active Substance: CILOSTAZOL
  2. LOTREL [Concomitant]
     Active Substance: AMLODIPINE BESYLATE\BENAZEPRIL HYDROCHLORIDE
  3. HUMALOG [Suspect]
     Active Substance: INSULIN LISPRO
     Indication: TYPE 2 DIABETES MELLITUS
     Dosage: UNK, AS NEEDED
  4. ASA [Concomitant]
     Active Substance: ASPIRIN
     Dosage: 81 MG, UNK
  5. LANTUS [Concomitant]
     Active Substance: INSULIN GLARGINE
  6. VYTORIN [Concomitant]
     Active Substance: EZETIMIBE\SIMVASTATIN

REACTIONS (2)
  - Expired product administered [Unknown]
  - Drug dispensing error [Unknown]

NARRATIVE: CASE EVENT DATE: 20090501
